FAERS Safety Report 11602687 (Version 2)
Quarter: 2016Q4

REPORT INFORMATION
  Report Type: Spontaneous
  Country: US (occurrence: US)
  Receive Date: 20151006
  Receipt Date: 20161005
  Transmission Date: 20170206
  Serious: No
  Sender: FDA-Public Use
  Company Number: US-AMGEN-USASP2015079187

PATIENT
  Age: 82 Year
  Sex: Male

DRUGS (4)
  1. SIMVASTATIN. [Concomitant]
     Active Substance: SIMVASTATIN
     Dosage: 10 MG, UNK
     Route: 065
  2. ASPIRIN 81 [Concomitant]
     Active Substance: ASPIRIN
     Dosage: 81 MG, BID
     Route: 065
  3. GABAPENTIN. [Concomitant]
     Active Substance: GABAPENTIN
     Dosage: 300 MG, TID
  4. PROLIA [Suspect]
     Active Substance: DENOSUMAB
     Indication: OSTEOPOROSIS
     Dosage: UNK, UNK
     Route: 065
     Dates: start: 20110513

REACTIONS (18)
  - Pollakiuria [Unknown]
  - Memory impairment [Unknown]
  - Blood cholesterol decreased [Unknown]
  - Pyrexia [Unknown]
  - Abdominal pain [Unknown]
  - Chest pain [Unknown]
  - Dysphagia [Unknown]
  - Muscle spasms [Unknown]
  - Pain [Unknown]
  - Pruritus [Unknown]
  - Back pain [Unknown]
  - Rash erythematous [Unknown]
  - Depression [Unknown]
  - Chills [Unknown]
  - Mobility decreased [Unknown]
  - Feeling abnormal [Unknown]
  - Balance disorder [Unknown]
  - Musculoskeletal pain [Unknown]

NARRATIVE: CASE EVENT DATE: 20120504
